FAERS Safety Report 8760948 (Version 1)
Quarter: 2012Q4

REPORT INFORMATION
  Report Type: 
  Country: US (occurrence: US)
  Receive Date: 20120830
  Receipt Date: 20120830
  Transmission Date: 20130627
  Serious: Yes (Other)
  Sender: FDA-Public Use
  Company Number: PHEH2012US016823

PATIENT
  Sex: Female

DRUGS (12)
  1. TEGRETOL [Suspect]
     Indication: CONVULSION
     Dosage: 700mg AM, 700mg 2PM, 800 mg bed
  2. PHENOBARBITAL [Concomitant]
     Indication: EPILEPSY
     Dosage: 64.8mg AM, 97.2 mg bed
  3. ZOLOFT [Concomitant]
     Indication: DEPRESSION
     Dosage: 75 mg AM, 50 mg bed
  4. SYNTHROID [Concomitant]
     Indication: HYPOTHYROIDISM
     Dosage: 100 mcg 2PM
  5. SINGULAIR [Concomitant]
     Indication: ASTHMA
     Dosage: 10mg 4PM
  6. SINGULAIR [Concomitant]
     Indication: HYPERSENSITIVITY
  7. AZOR [Concomitant]
     Indication: HYPERTENSION
     Dosage: 5/40 (1 tab in PM)
  8. NEXIUM [Concomitant]
     Indication: GASTROOESOPHAGEAL REFLUX DISEASE
     Dosage: 1 DF, QD
  9. ALLEGRA [Concomitant]
     Indication: HYPERSENSITIVITY
     Dosage: 180 mg, QD
  10. MUCINEX [Concomitant]
     Indication: HYPERSENSITIVITY
     Dosage: 1200 mg, QD
  11. MIRALAX [Concomitant]
     Indication: CONSTIPATION
     Dosage: 1 DF, QD
  12. COLACE [Concomitant]
     Indication: CONSTIPATION
     Dosage: 10 mg, TID

REACTIONS (11)
  - Visual acuity reduced [Unknown]
  - Loss of consciousness [Unknown]
  - Miosis [Unknown]
  - Hypopnoea [Unknown]
  - Toxicity to various agents [Unknown]
  - Hypertension [Unknown]
  - Vision blurred [Unknown]
  - Movement disorder [Unknown]
  - Asthenia [Unknown]
  - Anticonvulsant drug level increased [Unknown]
  - Convulsion [Unknown]
